FAERS Safety Report 16984435 (Version 2)
Quarter: 2020Q1

REPORT INFORMATION
  Report Type: Spontaneous
  Country: US (occurrence: US)
  Receive Date: 20191101
  Receipt Date: 20200310
  Transmission Date: 20200409
  Serious: No
  Sender: FDA-Public Use
  Company Number: US-FARMAPROD-201909-1371

PATIENT
  Age: 57 Year
  Sex: Male

DRUGS (6)
  1. OXERVATE [Suspect]
     Active Substance: CENEGERMIN-BKBJ
     Indication: NEUROTROPHIC KERATOPATHY
     Route: 047
  2. PREDNISOLONE ACETATE. [Concomitant]
     Active Substance: PREDNISOLONE ACETATE
     Route: 047
  3. TIMOLOL. [Concomitant]
     Active Substance: TIMOLOL
  4. LISINOPRIL. [Concomitant]
     Active Substance: LISINOPRIL
  5. OXERVATE [Suspect]
     Active Substance: CENEGERMIN-BKBJ
     Indication: CORNEAL ABRASION
  6. OFLOXACIN. [Concomitant]
     Active Substance: OFLOXACIN

REACTIONS (7)
  - Eye pain [Unknown]
  - Condition aggravated [Unknown]
  - Corneal abrasion [Not Recovered/Not Resolved]
  - Product dose omission [Unknown]
  - Vision blurred [Not Recovered/Not Resolved]
  - Ocular hyperaemia [Recovered/Resolved]
  - Eye pain [Not Recovered/Not Resolved]

NARRATIVE: CASE EVENT DATE: 20190902
